FAERS Safety Report 4697995-8 (Version None)
Quarter: 2005Q2

REPORT INFORMATION
  Report Type: 
  Country: None (occurrence: None)
  Receive Date: 20050621
  Receipt Date: 20050608
  Transmission Date: 20051028
  Serious: Yes (Life-Threatening)
  Sender: FDA-Public Use
  Company Number: 2005079994

PATIENT
  Age: 63 Year
  Sex: Male
  Weight: 69 kg

DRUGS (8)
  1. MINOXIDIL [Suspect]
     Indication: ALOPECIA
     Dosage: 2 ML (QD), TOPICAL
     Route: 061
     Dates: start: 20050404, end: 20050421
  2. ALDACTAZINE (SPIRONOLACTONE, ALTIZIDE) [Suspect]
     Indication: ESSENTIAL HYPERTENSION
     Dosage: 0.5 DF (OD), ORAL
     Route: 048
     Dates: end: 20050421
  3. DILTIAZEM [Suspect]
     Indication: ESSENTIAL HYPERTENSION
     Dosage: 200 MG (200 MG, QD), ORAL
     Route: 048
     Dates: end: 20050421
  4. VALSARTAN [Suspect]
     Indication: ESSENTIAL HYPERTENSION
     Dosage: 1 DF (QD), ORAL
     Route: 048
     Dates: end: 20050421
  5. TAHOR (ATORVASTATIN) [Concomitant]
  6. KARDEGIC (ACETYLSALICYLATE LYSINE) [Concomitant]
  7. BIOTIN [Concomitant]
  8. DEXPANTHENOL (DEXPANTHENOL) [Concomitant]

REACTIONS (1)
  - MYOCARDIAL INFARCTION [None]
